FAERS Safety Report 25039452 (Version 3)
Quarter: 2025Q2

REPORT INFORMATION
  Report Type: Report from Study
  Country: US (occurrence: US)
  Receive Date: 20250305
  Receipt Date: 20250522
  Transmission Date: 20250717
  Serious: Yes (Hospitalization)
  Sender: TAIHO ONCOLOGY INC
  Company Number: US-Taiho Oncology Inc-2025-002297

PATIENT
  Age: 87 Year
  Sex: Male

DRUGS (1)
  1. INQOVI [Suspect]
     Active Substance: CEDAZURIDINE\DECITABINE
     Indication: Myelodysplastic syndrome
     Dosage: 135 MG (DECITABINE 35MG + CEDAZURIDINE 100 MG); ON DAYS 1-5 (BEFORE BREAKFAST) OF EACH 28-DAY CYCLE;
     Route: 048
     Dates: start: 202502

REACTIONS (9)
  - Transfusion [Unknown]
  - Platelet transfusion [Unknown]
  - Arthralgia [Unknown]
  - Abdominal distension [Unknown]
  - Abdominal pain upper [Unknown]
  - Spinal pain [Unknown]
  - Pleuritic pain [Unknown]
  - Musculoskeletal chest pain [Unknown]
  - Sacral pain [Unknown]

NARRATIVE: CASE EVENT DATE: 20250201
